FAERS Safety Report 8533462-9 (Version None)
Quarter: 2012Q3

REPORT INFORMATION
  Report Type: 
  Country: None (occurrence: None)
  Receive Date: 20120717
  Receipt Date: 20120717
  Transmission Date: 20120928
  Serious: Yes (Hospitalization)
  Sender: FDA-Public Use
  Company Number: None

PATIENT
  Age: 75 Year
  Sex: Female
  Weight: 97 kg

DRUGS (12)
  1. ASPIRIN [Suspect]
     Indication: CARDIAC DISORDER
     Dosage: 81 MG DAILY PO PRIOR TO ADMISSION
     Route: 048
  2. METOPROLOL SUCCINATE EXTENDED RELEASE [Concomitant]
  3. METFORMIN HYDROCHLORIDE [Concomitant]
  4. WARFARIN SODIUM [Suspect]
     Indication: ANTICOAGULANT THERAPY
     Dosage: 5 MG DAILY PO PRIOR TO ADMISSION
     Route: 048
  5. WARFARIN SODIUM [Suspect]
     Indication: ATRIAL FLUTTER
     Dosage: 5 MG DAILY PO PRIOR TO ADMISSION
     Route: 048
  6. ACETAMINOPHEN [Concomitant]
  7. AMIODARONE HCL [Concomitant]
  8. DESLORATADINE [Concomitant]
  9. CHOLECALCIFEROL [Concomitant]
  10. VALSARTAN [Concomitant]
  11. TRIAMTERENE AND HYDROCHLOROTHIAZIDE [Concomitant]
  12. CALCIUM + VITAMIN D [Concomitant]

REACTIONS (9)
  - ANAEMIA [None]
  - FATIGUE [None]
  - ASTHENIA [None]
  - INTERNATIONAL NORMALISED RATIO INCREASED [None]
  - RECTAL HAEMORRHAGE [None]
  - DYSPNOEA [None]
  - DECREASED APPETITE [None]
  - TREATMENT NONCOMPLIANCE [None]
  - HAEMORRHOIDS [None]
